FAERS Safety Report 7115689-6 (Version None)
Quarter: 2010Q4

REPORT INFORMATION
  Report Type: 
  Country: None (occurrence: None)
  Receive Date: 20101122
  Receipt Date: 20101116
  Transmission Date: 20110411
  Serious: Yes (Life-Threatening)
  Sender: FDA-Public Use
  Company Number: PHHY2010BR78174

PATIENT
  Sex: Female

DRUGS (2)
  1. PARLODEL [Suspect]
     Indication: BLOOD PROLACTIN INCREASED
     Dosage: 2.5 MG/DAY
     Route: 048
  2. SIMVASTATIN [Concomitant]
     Indication: BLOOD CHOLESTEROL
     Dosage: 1 TABLET (20 MG) AT NIGHT
     Route: 048

REACTIONS (7)
  - CHILLS [None]
  - DIARRHOEA [None]
  - DYSSTASIA [None]
  - FEELING ABNORMAL [None]
  - HEADACHE [None]
  - TREMOR [None]
  - VOMITING [None]
